FAERS Safety Report 13919079 (Version 1)
Quarter: 2017Q3

REPORT INFORMATION
  Report Type: Spontaneous
  Country: AR (occurrence: AR)
  Receive Date: 20170830
  Receipt Date: 20170830
  Transmission Date: 20171127
  Serious: Yes (Hospitalization, Other)
  Sender: FDA-Public Use
  Company Number: AR-CHARTWELL PHARMA-2025291

PATIENT
  Age: 33 Year
  Sex: Male

DRUGS (1)
  1. INDOMETHACIN. [Suspect]
     Active Substance: INDOMETHACIN
     Indication: INTRACRANIAL PRESSURE INCREASED
     Route: 042

REACTIONS (5)
  - Intracranial pressure increased [Unknown]
  - Thrombocytopenia [Unknown]
  - Rebound effect [Unknown]
  - Disseminated intravascular coagulation [Unknown]
  - Renal failure [Unknown]
